FAERS Safety Report 12723379 (Version 1)
Quarter: 2016Q3

REPORT INFORMATION
  Report Type: Spontaneous
  Country: IL (occurrence: IL)
  Receive Date: 20160908
  Receipt Date: 20160908
  Transmission Date: 20161109
  Serious: Yes (Hospitalization)
  Sender: FDA-Public Use
  Company Number: IL-GLENMARK PHARMACEUTICALS INC, USA.-2014GMK009534

PATIENT
  Age: 54 Year
  Sex: Male

DRUGS (2)
  1. TOPIRAMATE. [Suspect]
     Active Substance: TOPIRAMATE
     Dosage: 50 MG, QD
     Route: 048
  2. TOPIRAMATE. [Suspect]
     Active Substance: TOPIRAMATE

REACTIONS (2)
  - Uveitis [Recovered/Resolved]
  - Angle closure glaucoma [Recovered/Resolved]
